FAERS Safety Report 4786022-X (Version None)
Quarter: 2005Q3

REPORT INFORMATION
  Report Type: 
  Country: None (occurrence: None)
  Receive Date: 20050930
  Receipt Date: 20050919
  Transmission Date: 20060218
  Serious: Yes (Other)
  Sender: FDA-Public Use
  Company Number: 2005129780

PATIENT
  Age: 38 Year
  Sex: Female

DRUGS (1)
  1. NICORETTE [Suspect]
     Indication: SMOKING CESSATION THERAPY
     Dosage: 15MG THEN 10 MG DAILY, TRANSDERMAL
     Route: 062
     Dates: start: 20040101

REACTIONS (3)
  - AMNESIA [None]
  - DEPRESSION [None]
  - EUPHORIC MOOD [None]
